FAERS Safety Report 9654862 (Version 2)
Quarter: 2013Q4

REPORT INFORMATION
  Report Type: Spontaneous
  Country: US (occurrence: US)
  Receive Date: 20131029
  Receipt Date: 20131029
  Transmission Date: 20140711
  Serious: No
  Sender: FDA-Public Use
  Company Number: US-BAXTER-2013BAX019622

PATIENT
  Sex: 0

DRUGS (1)
  1. SUPRANE (DESFLURANE, USP) [Suspect]
     Indication: GENERAL ANAESTHESIA
     Route: 055

REACTIONS (2)
  - Accidental exposure to product [Recovered/Resolved]
  - Device leakage [Unknown]
